FAERS Safety Report 22329595 (Version 1)
Quarter: 2023Q2

REPORT INFORMATION
  Report Type: Other
  Country: FR (occurrence: FR)
  Receive Date: 20230517
  Receipt Date: 20230517
  Transmission Date: 20230721
  Serious: Yes (Death)
  Sender: FDA-Public Use
  Company Number: None

PATIENT

DRUGS (15)
  1. ACYCLOVIR [Suspect]
     Active Substance: ACYCLOVIR
     Indication: Skin lesion
     Dosage: 1 DOSAGE FORM, QD
     Route: 003
     Dates: start: 20230317, end: 20230403
  2. LANSOPRAZOLE [Suspect]
     Active Substance: LANSOPRAZOLE
     Indication: Product used for unknown indication
     Dosage: 15 MILLIGRAM, QD
     Route: 048
     Dates: start: 20230320, end: 20230403
  3. METRONIDAZOLE [Suspect]
     Active Substance: METRONIDAZOLE
     Indication: Lung disorder
     Dosage: 1500 MILLIGRAM, QD
     Route: 042
     Dates: start: 20230331, end: 20230403
  4. CEFOTAXIME [Suspect]
     Active Substance: CEFOTAXIME SODIUM
     Indication: Lung disorder
     Dosage: 3 GRAM, QD
     Route: 042
     Dates: start: 20230331, end: 20230403
  5. FENTANYL [Suspect]
     Active Substance: FENTANYL
     Indication: Pain
     Dosage: 1 DOSAGE FORM PER 3 DAYS
     Route: 062
     Dates: start: 20230330, end: 20230402
  6. SCOPOLAMINE [Suspect]
     Active Substance: SCOPOLAMINE
     Indication: Product used for unknown indication
     Dosage: 1.5 MILLIGRAM, QD
     Route: 058
     Dates: start: 20230302, end: 20230403
  7. POTASSIUM BITARTRATE\SODIUM BICARBONATE [Suspect]
     Active Substance: POTASSIUM BITARTRATE\SODIUM BICARBONATE
     Indication: Product used for unknown indication
     Dosage: 3 DOSAGE FORM, QD
     Route: 054
     Dates: start: 20230331, end: 20230403
  8. PIPERACILLIN AND TAZOBACTAM [Suspect]
     Active Substance: PIPERACILLIN SODIUM\TAZOBACTAM SODIUM
     Indication: Lung disorder
     Dosage: 12 GRAM, QD
     Route: 042
     Dates: start: 20230313, end: 20230320
  9. ORAMORPH SR SUSTAINED RELEASE [Suspect]
     Active Substance: MORPHINE SULFATE
     Indication: Pain
     Dosage: 2 MILLIGRAM, QD
     Route: 048
     Dates: start: 20230315, end: 20230330
  10. LOVENOX [Suspect]
     Active Substance: ENOXAPARIN SODIUM
     Indication: Thrombosis prophylaxis
     Dosage: 1 DOSAGE FORM, QD
     Route: 003
     Dates: start: 20230331, end: 20230403
  11. CEFTRIAXONE [Suspect]
     Active Substance: CEFTRIAXONE
     Indication: Lung disorder
     Dosage: 1 GRAM, QD
     Route: 042
     Dates: start: 20230306, end: 20230312
  12. KARDEGIC [Concomitant]
     Active Substance: ASPIRIN DL-LYSINE
     Indication: Product used for unknown indication
     Dosage: UNK
     Route: 065
  13. LEVOTHYROXINE [Concomitant]
     Active Substance: LEVOTHYROXINE
     Indication: Product used for unknown indication
     Dosage: UNK
     Route: 065
  14. FUROSEMIDE [Concomitant]
     Active Substance: FUROSEMIDE
     Indication: Product used for unknown indication
     Dosage: UNK
     Route: 065
  15. ALBUTEROL SULFATE [Concomitant]
     Active Substance: ALBUTEROL SULFATE
     Indication: Product used for unknown indication
     Dosage: UNK
     Route: 065

REACTIONS (1)
  - Stevens-Johnson syndrome [Fatal]

NARRATIVE: CASE EVENT DATE: 20230403
